FAERS Safety Report 9467221 (Version 1)
Quarter: 2013Q3

REPORT INFORMATION
  Report Type: Spontaneous
  Country: FR (occurrence: FR)
  Receive Date: 20130821
  Receipt Date: 20130821
  Transmission Date: 20140515
  Serious: Yes (Hospitalization)
  Sender: FDA-Public Use
  Company Number: FR-AMGEN-FRASP2013058419

PATIENT
  Age: 77 Year
  Sex: Male
  Weight: 58 kg

DRUGS (5)
  1. VECTIBIX [Suspect]
     Indication: COLORECTAL CANCER METASTATIC
     Dosage: 6 MG/KG (348 MG), EVERY 14 DAYS (D1=D15)
     Route: 042
     Dates: start: 20130402
  2. CHEMOTHERAPEUTICS [Concomitant]
     Indication: COLORECTAL CANCER METASTATIC
     Dosage: UNK
  3. METHYLPREDNISOLONE [Concomitant]
     Indication: PROPHYLAXIS OF NAUSEA AND VOMITING
     Dosage: 80 MG, AT EVERY VECTIBIX COURSE
     Route: 042
     Dates: start: 20130709, end: 20130709
  4. SETRON                             /00944301/ [Concomitant]
     Indication: PROPHYLAXIS OF NAUSEA AND VOMITING
     Dosage: 8 MG, AT EVERY VECTIBIX COURSE
     Route: 042
     Dates: start: 20130709, end: 20130709
  5. POLARAMINE [Concomitant]
     Indication: PROPHYLAXIS
     Dosage: 5 MG, UNK

REACTIONS (1)
  - Wrong technique in drug usage process [Recovered/Resolved]
